FAERS Safety Report 21107632 (Version 1)
Quarter: 2022Q3

REPORT INFORMATION
  Report Type: Spontaneous
  Country: US (occurrence: US)
  Receive Date: 20220720
  Receipt Date: 20220720
  Transmission Date: 20221026
  Serious: No
  Sender: FDA-Public Use
  Company Number: US-BoehringerIngelheim-2022-BI-182833

PATIENT
  Age: 62 Year
  Sex: Female

DRUGS (1)
  1. COMBIVENT [Suspect]
     Active Substance: ALBUTEROL SULFATE\IPRATROPIUM BROMIDE
     Indication: Product used for unknown indication
     Dates: start: 20190124

REACTIONS (2)
  - Intentional product misuse [Unknown]
  - Dyspnoea [Unknown]

NARRATIVE: CASE EVENT DATE: 20220701
